FAERS Safety Report 7771774-7 (Version None)
Quarter: 2011Q3

REPORT INFORMATION
  Report Type: 
  Country: None (occurrence: None)
  Receive Date: 20110922
  Receipt Date: 20110913
  Transmission Date: 20111222
  Serious: Yes (Hospitalization)
  Sender: FDA-Public Use
  Company Number: IL-ELI_LILLY_AND_COMPANY-IL201109003410

PATIENT
  Age: 80 Year
  Sex: Male

DRUGS (4)
  1. BYETTA [Suspect]
     Dosage: 5 UG, BID
  2. METFORMIN [Concomitant]
     Dosage: 875 MG, BID
  3. AMLODIPINE [Concomitant]
     Dosage: 5 MG, QD
  4. RAMIPRIL [Concomitant]
     Dosage: 5 MG, QD

REACTIONS (3)
  - PANCREATITIS [None]
  - RENAL FAILURE [None]
  - DIARRHOEA [None]
